FAERS Safety Report 17424539 (Version 1)
Quarter: 2020Q1

REPORT INFORMATION
  Report Type: Spontaneous
  Country: US (occurrence: US)
  Receive Date: 20200217
  Receipt Date: 20200217
  Transmission Date: 20200409
  Serious: Yes (Other)
  Sender: FDA-Public Use
  Company Number: US-INCYTE CORPORATION-2020IN001438

PATIENT

DRUGS (1)
  1. JAKAFI [Suspect]
     Active Substance: RUXOLITINIB
     Indication: MYELOFIBROSIS
     Dosage: UNK
     Route: 065

REACTIONS (11)
  - Bone pain [Unknown]
  - Fatigue [Unknown]
  - Sleep disorder [Unknown]
  - Decreased activity [Unknown]
  - Thinking abnormal [Unknown]
  - Thrombosis [Unknown]
  - Platelet count decreased [Unknown]
  - Splenomegaly [Unknown]
  - Asthenia [Unknown]
  - Hepatomegaly [Unknown]
  - Dyspnoea [Unknown]
